FAERS Safety Report 10220332 (Version 1)
Quarter: 2014Q2

REPORT INFORMATION
  Report Type: Spontaneous
  Country: DE (occurrence: DE)
  Receive Date: 20140606
  Receipt Date: 20140606
  Transmission Date: 20141212
  Serious: Yes (Hospitalization)
  Sender: FDA-Public Use
  Company Number: DE-009507513-1406DEU002706

PATIENT
  Age: 52 Year
  Sex: Male

DRUGS (1)
  1. REMERGIL [Suspect]
     Dosage: 7.5 MG, QD
     Route: 048
     Dates: start: 20140121, end: 20140127

REACTIONS (1)
  - Dermatitis allergic [Recovered/Resolved]
